FAERS Safety Report 5421039-3 (Version None)
Quarter: 2007Q3

REPORT INFORMATION
  Report Type: 
  Country: None (occurrence: None)
  Receive Date: 20070821
  Receipt Date: 20070814
  Transmission Date: 20080115
  Serious: Yes (Other)
  Sender: FDA-Public Use
  Company Number: A0670166A

PATIENT
  Age: 44 Year
  Sex: Female

DRUGS (3)
  1. VERAMYST [Suspect]
     Dosage: 2PUFF PER DAY
     Route: 045
     Dates: start: 20070810, end: 20070814
  2. AVELOX [Concomitant]
  3. MUCINEX [Concomitant]

REACTIONS (13)
  - CRYING [None]
  - DIZZINESS [None]
  - DYSSTASIA [None]
  - FEAR OF DEATH [None]
  - FEELING ABNORMAL [None]
  - HALLUCINATION [None]
  - HYPERHIDROSIS [None]
  - INSOMNIA [None]
  - NAUSEA [None]
  - PANIC ATTACK [None]
  - PARANOIA [None]
  - PERFORMANCE STATUS DECREASED [None]
  - TACHYCARDIA [None]
